FAERS Safety Report 5281504-9 (Version None)
Quarter: 2007Q1

REPORT INFORMATION
  Report Type: 
  Country: None (occurrence: None)
  Receive Date: 20070330
  Receipt Date: 20070319
  Transmission Date: 20070707
  Serious: Yes (Hospitalization, Other)
  Sender: FDA-Public Use
  Company Number: GB-JNJFOC-20070304513

PATIENT
  Sex: Female
  Weight: 81 kg

DRUGS (4)
  1. INFLIXIMAB [Suspect]
     Indication: ANKYLOSING SPONDYLITIS
     Route: 042
  2. SULPHASALASINE [Concomitant]
  3. MOBIC [Concomitant]
  4. NORETHINDRONE ACETATE [Concomitant]

REACTIONS (1)
  - REPRODUCTIVE TRACT DISORDER [None]
